FAERS Safety Report 6877281-8 (Version None)
Quarter: 2010Q3

REPORT INFORMATION
  Report Type: 
  Country: None (occurrence: None)
  Receive Date: 20100727
  Receipt Date: 20090921
  Transmission Date: 20110219
  Serious: No
  Sender: FDA-Public Use
  Company Number: US-ABBOTT-09P-163-0591305-00

PATIENT
  Sex: Female

DRUGS (2)
  1. SYNTHROID [Suspect]
     Indication: HYPOTHYROIDISM
     Dates: start: 20090301, end: 20090512
  2. SYNTHROID [Suspect]
     Dosage: 50 MICROGRAMS DAILY
     Route: 048
     Dates: start: 20090513

REACTIONS (3)
  - ASTHENIA [None]
  - IMPAIRED DRIVING ABILITY [None]
  - INSOMNIA [None]
